FAERS Safety Report 4833963-0 (Version None)
Quarter: 2005Q4

REPORT INFORMATION
  Report Type: 
  Country: None (occurrence: None)
  Receive Date: 20051118
  Receipt Date: 20051118
  Transmission Date: 20060501
  Serious: Yes (Other)
  Sender: FDA-Public Use
  Company Number: None

PATIENT
  Age: 60 Year
  Sex: Male
  Weight: 130.6 kg

DRUGS (15)
  1. GATIFLOXACIN [Suspect]
  2. SODIUM CHLORIDE [Concomitant]
  3. FLUNISOLIDE INHL NASAL [Concomitant]
  4. LORAZEPAM [Concomitant]
  5. IBUPROFEN [Concomitant]
  6. PHENYTOIN [Concomitant]
  7. CITALOPRAM [Concomitant]
  8. DIPHENHYDRAMINE HCL [Concomitant]
  9. THIAMINE [Concomitant]
  10. RANITIDINE [Concomitant]
  11. MULTI-VITAMIN [Concomitant]
  12. MAGNESIUM OXIDE [Concomitant]
  13. FOLIC ACID [Concomitant]
  14. GATIFLOXACIN [Concomitant]
  15. CEFAZOLIN [Concomitant]

REACTIONS (1)
  - URTICARIA [None]
